FAERS Safety Report 7619982-X (Version None)
Quarter: 2011Q3

REPORT INFORMATION
  Report Type: 
  Country: None (occurrence: None)
  Receive Date: 20110719
  Receipt Date: 20110708
  Transmission Date: 20111222
  Serious: Yes (Hospitalization)
  Sender: FDA-Public Use
  Company Number: CA-JNJFOC-20110605882

PATIENT
  Sex: Male
  Weight: 76 kg

DRUGS (1)
  1. REMICADE [Suspect]
     Indication: CROHN'S DISEASE
     Dosage: START DATE ALSO REPORTED AS 2008
     Route: 042
     Dates: start: 20070301, end: 20110401

REACTIONS (2)
  - COLECTOMY [None]
  - ELECTIVE SURGERY [None]
